FAERS Safety Report 24404799 (Version 1)
Quarter: 2024Q4

REPORT INFORMATION
  Report Type: Spontaneous
  Country: US (occurrence: None)
  Receive Date: 20241004
  Receipt Date: 20241004
  Transmission Date: 20250115
  Serious: No
  Sender: Public
  Company Number: None

PATIENT
  Age: 57 Year
  Sex: Male

DRUGS (1)
  1. TEMOZOLOMIDE [Suspect]
     Active Substance: TEMOZOLOMIDE
     Indication: Brain neoplasm malignant
     Dosage: OTHER QUANTITY : 140;?FREQUENCY : DAILY;?
     Route: 048
     Dates: start: 20240912

REACTIONS (1)
  - Nausea [None]

NARRATIVE: CASE EVENT DATE: 20240920
